FAERS Safety Report 25531268 (Version 2)
Quarter: 2025Q3

REPORT INFORMATION
  Report Type: Spontaneous
  Country: CH (occurrence: CH)
  Receive Date: 20250708
  Receipt Date: 20250809
  Transmission Date: 20251021
  Serious: Yes (Hospitalization, Other)
  Sender: ALEXION PHARMACEUTICALS
  Company Number: None

PATIENT
  Age: 68 Year
  Sex: Male

DRUGS (8)
  1. XIGDUO XR [Suspect]
     Active Substance: DAPAGLIFLOZIN PROPANEDIOL\METFORMIN HYDROCHLORIDE
  2. ROSUVASTATIN [Suspect]
     Active Substance: ROSUVASTATIN
  3. SEMAGLUTIDE [Suspect]
     Active Substance: SEMAGLUTIDE
  4. PERINDOPRIL [Suspect]
     Active Substance: PERINDOPRIL
  5. EZETIMIBE [Suspect]
     Active Substance: EZETIMIBE
  6. ASPIRIN [Concomitant]
     Active Substance: ASPIRIN
  7. AZELASTINE HYDROCHLORIDE\FLUTICASONE PROPIONATE [Concomitant]
     Active Substance: AZELASTINE HYDROCHLORIDE\FLUTICASONE PROPIONATE
  8. AZELASTINE [Concomitant]
     Active Substance: AZELASTINE

REACTIONS (1)
  - Pancreatitis acute [Recovered/Resolved]

NARRATIVE: CASE EVENT DATE: 20250622
